FAERS Safety Report 6790962-X (Version None)
Quarter: 2010Q2

REPORT INFORMATION
  Report Type: 
  Country: None (occurrence: None)
  Receive Date: 20100623
  Receipt Date: 20100623
  Transmission Date: 20101027
  Serious: Yes (Life-Threatening, Hospitalization)
  Sender: FDA-Public Use
  Company Number: None

PATIENT
  Sex: Female

DRUGS (1)
  1. LEVOPHED [Suspect]
     Dates: start: 20090906

REACTIONS (4)
  - BURNING SENSATION [None]
  - INFUSION SITE ERYTHEMA [None]
  - INFUSION SITE EXTRAVASATION [None]
  - INFUSION SITE WARMTH [None]
